FAERS Safety Report 8579867-1 (Version None)
Quarter: 2012Q3

REPORT INFORMATION
  Report Type: 
  Country: None (occurrence: None)
  Receive Date: 20120808
  Receipt Date: 20120806
  Transmission Date: 20120928
  Serious: Yes (Other)
  Sender: FDA-Public Use
  Company Number: IT-JNJFOC-20120504614

PATIENT

DRUGS (1)
  1. HUMAN CLOTTABLE PROTEIN/HUMAN THROMBIN [Suspect]
     Indication: RECTOURETHRAL FISTULA
     Route: 065

REACTIONS (2)
  - RESECTION OF RECTUM [None]
  - DRUG INEFFECTIVE FOR UNAPPROVED INDICATION [None]
